FAERS Safety Report 6195166-X (Version None)
Quarter: 2009Q2

REPORT INFORMATION
  Report Type: 
  Country: None (occurrence: None)
  Receive Date: 20090519
  Receipt Date: 20090330
  Transmission Date: 20091009
  Serious: Yes (Other)
  Sender: FDA-Public Use
  Company Number: US-BAYER-200914823NA

PATIENT
  Age: 25 Year
  Sex: Male

DRUGS (5)
  1. KOGENATE FS [Suspect]
     Indication: FACTOR VIII DEFICIENCY
     Dosage: TOTAL DAILY DOSE: 4000 U
     Dates: start: 20090201
  2. KOGENATE FS [Suspect]
     Dosage: 2000-2000-4000 UNITS
     Dates: start: 20070101
  3. NEURONTIN [Concomitant]
     Indication: PAIN
  4. LONG ACTING OXYCODONE [Concomitant]
  5. FENTANYL [Concomitant]

REACTIONS (14)
  - ABDOMINAL PAIN [None]
  - ABDOMINAL PAIN UPPER [None]
  - ALANINE AMINOTRANSFERASE INCREASED [None]
  - ASPARTATE AMINOTRANSFERASE INCREASED [None]
  - BILIARY DILATATION [None]
  - BLOOD ALKALINE PHOSPHATASE INCREASED [None]
  - BLOOD GLUCOSE INCREASED [None]
  - FATIGUE [None]
  - HEPATIC ENZYME INCREASED [None]
  - HEPATIC STEATOSIS [None]
  - HEPATOMEGALY [None]
  - JOINT INJURY [None]
  - SOMNOLENCE [None]
  - SPLENOMEGALY [None]
